FAERS Safety Report 8871237 (Version 1)
Quarter: 2012Q4

REPORT INFORMATION
  Report Type: 
  Country: US (occurrence: US)
  Receive Date: 20121026
  Receipt Date: 20121026
  Transmission Date: 20130627
  Serious: No
  Sender: FDA-Public Use
  Company Number: US-AMGEN-USASP2012048271

PATIENT
  Age: 53 Year
  Sex: Female
  Weight: 80.73 kg

DRUGS (8)
  1. ENBREL [Suspect]
     Indication: PRODUCT USED FOR UNKNOWN INDICATION
     Dosage: 50 mg, qwk
     Route: 058
  2. CYMBALTA [Concomitant]
     Dosage: 30 mg, UNK
  3. PLAQUENIL                          /00072602/ [Concomitant]
     Dosage: 200 mg, UNK
  4. METHOTREXATE [Concomitant]
     Dosage: 2.5 mg, UNK
  5. CRESTOR [Concomitant]
     Dosage: 20 mg, UNK
  6. FOLIC ACID [Concomitant]
     Dosage: UNK
  7. MAXZIDE [Concomitant]
     Dosage: 25 mg, UNK
  8. SALAGEN [Concomitant]
     Dosage: 7.5 mg, UNK

REACTIONS (2)
  - Headache [Unknown]
  - Injection site reaction [Unknown]
